FAERS Safety Report 6961191-1 (Version None)
Quarter: 2010Q3

REPORT INFORMATION
  Report Type: 
  Country: None (occurrence: None)
  Receive Date: 20100823
  Receipt Date: 20100603
  Transmission Date: 20110219
  Serious: No
  Sender: FDA-Public Use
  Company Number: 007742

PATIENT
  Sex: Male
  Weight: 114.76 kg

DRUGS (9)
  1. CIMZIA [Suspect]
     Indication: CROHN'S DISEASE
     Dosage: (200 MG 1X/2 WEEKS SUBCUTANEOUS)
     Route: 058
     Dates: start: 20090130
  2. PREDNISONE [Suspect]
     Indication: RHEUMATOID ARTHRITIS
     Dosage: (5 MG QOD ORAL)
     Route: 048
  3. ACTONEL [Suspect]
     Indication: RHEUMATOID ARTHRITIS
     Dosage: (2.5 MG 1X/WEEK ORAL)
     Route: 048
  4. SUBOXONE [Suspect]
     Dosage: (8 MG BID ORAL)
     Route: 048
  5. FOLIC ACID [Concomitant]
  6. PREVACID [Concomitant]
  7. METHADONE HCL [Concomitant]
  8. OXYCODONE HCL [Concomitant]
  9. MIRAPEX [Concomitant]

REACTIONS (7)
  - HEART RATE [None]
  - PAIN [None]
  - RECURRING SKIN BOILS [None]
  - TOOTH ABSCESS [None]
  - TOOTHACHE [None]
  - URINARY TRACT INFECTION [None]
  - WHEEZING [None]
